FAERS Safety Report 11585474 (Version 4)
Quarter: 2016Q3

REPORT INFORMATION
  Report Type: Spontaneous
  Country: JP (occurrence: JP)
  Receive Date: 20151001
  Receipt Date: 20160818
  Transmission Date: 20161109
  Serious: Yes (Death)
  Sender: FDA-Public Use
  Company Number: JP-SA-2015SA150714

PATIENT
  Age: 73 Year
  Sex: Male
  Weight: 48.2 kg

DRUGS (2)
  1. TAXOTERE [Suspect]
     Active Substance: DOCETAXEL
     Indication: NON-SMALL CELL LUNG CANCER
     Route: 042
     Dates: start: 20111026
  2. DECADRON [Concomitant]
     Active Substance: DEXAMETHASONE
     Indication: PREMEDICATION
     Dosage: EVERY ADMINISTRATION OF DOCETAXEL.
     Route: 065
     Dates: start: 20111026

REACTIONS (5)
  - Pulmonary toxicity [Fatal]
  - Pyrexia [Fatal]
  - Condition aggravated [Fatal]
  - Dyspnoea [Fatal]
  - Lung infiltration [Fatal]

NARRATIVE: CASE EVENT DATE: 20111104
